FAERS Safety Report 9051115 (Version 4)
Quarter: 2013Q1

REPORT INFORMATION
  Report Type: Spontaneous
  Country: US (occurrence: US)
  Receive Date: 20130206
  Receipt Date: 20130321
  Transmission Date: 20140127
  Serious: No
  Sender: FDA-Public Use
  Company Number: US-PFIZER INC-2013047587

PATIENT
  Age: 72 Year
  Sex: Female

DRUGS (7)
  1. SUTENT [Suspect]
     Indication: METASTATIC RENAL CELL CARCINOMA
     Dosage: 37.5 MG, DAILY X 28 DAYS-14 DAYS OFF AND REPEAT
     Route: 048
     Dates: start: 20120919
  2. CLARITIN [Concomitant]
     Dosage: UNK, AS NEEDED
  3. TUMS [Concomitant]
     Dosage: UNK, AS NEEDED
  4. LOSARTAN POTASSIUM W/HYDROCHLOROTHIAZIDE [Concomitant]
     Dosage: 100/25
  5. SIMVASTATIN [Concomitant]
     Dosage: UNK
  6. GLIPIZIDE [Concomitant]
     Dosage: 2.5 MG, UNK
  7. METFORMIN [Concomitant]
     Dosage: 500 MG, 2X/DAY

REACTIONS (9)
  - Alopecia [Unknown]
  - Productive cough [Recovered/Resolved]
  - Increased upper airway secretion [Unknown]
  - Nasopharyngitis [Unknown]
  - Upper respiratory tract infection [Unknown]
  - Sinus congestion [Unknown]
  - Upper respiratory tract congestion [Unknown]
  - Sinusitis [Unknown]
  - Diarrhoea [Unknown]
